FAERS Safety Report 11652914 (Version 2)
Quarter: 2015Q4

REPORT INFORMATION
  Report Type: Report from Study
  Country: US (occurrence: US)
  Receive Date: 20151022
  Receipt Date: 20151116
  Transmission Date: 20160304
  Serious: Yes (Life-Threatening, Hospitalization, Other)
  Sender: FDA-Public Use
  Company Number: US-BRISTOL-MYERS SQUIBB COMPANY-BMS-2015-068900

PATIENT
  Age: 22 Year

DRUGS (20)
  1. PREDNISONE. [Concomitant]
     Active Substance: PREDNISONE
     Indication: PRODUCT USED FOR UNKNOWN INDICATION
     Dosage: 5 MG, QD
     Route: 048
     Dates: end: 20151020
  2. ACETAMINOPHEN. [Concomitant]
     Active Substance: ACETAMINOPHEN
     Indication: PAIN
     Dosage: 650 MG, Q6H
     Route: 048
     Dates: start: 20151005, end: 20151007
  3. CALCIUM CARBONATE. [Concomitant]
     Active Substance: CALCIUM CARBONATE
     Indication: PROPHYLAXIS
     Dosage: 500 MG, TID
     Route: 048
     Dates: start: 20151005, end: 20151007
  4. CALCITRIOL. [Concomitant]
     Active Substance: CALCITRIOL
     Indication: ADVERSE EVENT
     Dosage: .25 MG, QMO
     Route: 048
     Dates: end: 20150714
  5. NIFEDIPINE. [Concomitant]
     Active Substance: NIFEDIPINE
     Indication: HYPERTENSION
     Dosage: 30 MG, QD
     Route: 048
     Dates: end: 20151007
  6. TACROLIMUS. [Suspect]
     Active Substance: TACROLIMUS
     Indication: RENAL TRANSPLANT
     Route: 065
  7. HEPARIN [Concomitant]
     Active Substance: HEPARIN SODIUM
     Indication: THROMBOSIS PROPHYLAXIS
     Dosage: 5000 UNIT, Q8H
     Route: 058
  8. HYDROCODONE BITARTRATE AND ACETAMINOPHEN [Concomitant]
     Active Substance: ACETAMINOPHEN\HYDROCODONE BITARTRATE
     Indication: PAIN
     Dosage: 1 TAB, Q6H
     Route: 048
     Dates: start: 20151005, end: 20151007
  9. ONDANSETRON [Concomitant]
     Active Substance: ONDANSETRON
     Indication: NAUSEA
     Dosage: 4 MG, Q8H
     Route: 048
     Dates: start: 20151005, end: 20151007
  10. PHOSPHORUS [Concomitant]
     Active Substance: PHOSPHORUS
     Indication: ADVERSE EVENT
     Dosage: UNK, TID
     Route: 048
     Dates: start: 20150826
  11. POLYETHYLENE GLYCOL [Concomitant]
     Active Substance: POLYETHYLENE GLYCOLS
     Indication: CONSTIPATION
     Dosage: 1 DF, QD
     Route: 048
     Dates: start: 20151005, end: 20151007
  12. ALPRAZOLAM. [Concomitant]
     Active Substance: ALPRAZOLAM
     Indication: ANXIETY
     Dosage: .25 MG, Q6H
     Route: 048
     Dates: start: 20151005, end: 20151007
  13. DIPHENHYDRAMINE. [Concomitant]
     Active Substance: DIPHENHYDRAMINE
     Indication: SLEEP DISORDER
     Dosage: 25 MG, PRN
     Route: 048
     Dates: start: 20151005, end: 20151007
  14. FAMOTIDINE. [Concomitant]
     Active Substance: FAMOTIDINE
     Indication: GASTROOESOPHAGEAL REFLUX DISEASE
     Dosage: 20 MG, QD
     Route: 048
     Dates: start: 20151005, end: 20151007
  15. SEVELAMER [Concomitant]
     Active Substance: SEVELAMER
     Indication: ADVERSE EVENT
     Dosage: 1600 MG, TID
     Route: 048
     Dates: end: 20151005
  16. PREDNISONE. [Concomitant]
     Active Substance: PREDNISONE
     Dosage: 2.5 MG, QD
     Route: 048
     Dates: start: 20151023
  17. PANTOPRAZOLE [Concomitant]
     Active Substance: PANTOPRAZOLE SODIUM
     Indication: GASTROOESOPHAGEAL REFLUX DISEASE
     Dosage: 40 MG, QD
     Route: 048
  18. PREDNISONE. [Concomitant]
     Active Substance: PREDNISONE
     Dosage: 5 MG, QD
     Route: 048
     Dates: start: 20150826, end: 20151022
  19. SEVELAMER [Concomitant]
     Active Substance: SEVELAMER
     Dosage: 800 MG, TID
     Route: 048
     Dates: start: 20151005
  20. PREDNISONE. [Concomitant]
     Active Substance: PREDNISONE
     Dosage: 2.5 MG, QD
     Route: 048
     Dates: start: 20150821, end: 20150825

REACTIONS (2)
  - Seizure [Recovered/Resolved]
  - Hypertension [Recovered/Resolved]

NARRATIVE: CASE EVENT DATE: 20151005
